FAERS Safety Report 5811741-3 (Version None)
Quarter: 2008Q3

REPORT INFORMATION
  Report Type: 
  Country: None (occurrence: None)
  Receive Date: 20080716
  Receipt Date: 20080709
  Transmission Date: 20090109
  Serious: Yes (Other)
  Sender: FDA-Public Use
  Company Number: B0528409A

PATIENT
  Age: 4 Year
  Sex: Male

DRUGS (1)
  1. ALTARGO [Suspect]
     Indication: WOUND INFECTION
     Route: 061
     Dates: start: 20080101, end: 20080101

REACTIONS (3)
  - ERYTHEMA [None]
  - HYPERSENSITIVITY [None]
  - PRURITUS [None]
